FAERS Safety Report 8759947 (Version 3)
Quarter: 2012Q4

REPORT INFORMATION
  Report Type: 
  Country: US (occurrence: US)
  Receive Date: 20120829
  Receipt Date: 20121205
  Transmission Date: 20130627
  Serious: Yes (Death)
  Sender: FDA-Public Use
  Company Number: US-GLAXOSMITHKLINE-A0991320A

PATIENT
  Age: 63 Year
  Sex: Female

DRUGS (10)
  1. VOTRIENT [Suspect]
     Indication: AGRANULOCYTOSIS
     Dosage: 800MG Per day
     Route: 048
     Dates: start: 20120712, end: 20120817
  2. SENNA [Concomitant]
  3. PRILOSEC [Concomitant]
  4. CODEINE SULFATE [Concomitant]
  5. PROCHLORPERAZINE [Concomitant]
  6. ONDANSETRON HCL [Concomitant]
  7. TIMOLOL MALEATE [Concomitant]
  8. METOPROLOL TARTRATE [Concomitant]
  9. IBUPROFEN [Concomitant]
  10. ASPIRIN [Concomitant]

REACTIONS (2)
  - Neoplasm malignant [Fatal]
  - Off label use [Unknown]
